FAERS Safety Report 19891002 (Version 2)
Quarter: 2021Q4

REPORT INFORMATION
  Report Type: Spontaneous
  Country: US (occurrence: US)
  Receive Date: 20210928
  Receipt Date: 20211206
  Transmission Date: 20220303
  Serious: Yes (Other)
  Sender: FDA-Public Use
  Company Number: US-AMNEAL PHARMACEUTICALS-2021-AMRX-03629

PATIENT
  Sex: Female

DRUGS (3)
  1. CARBIDOPA\LEVODOPA [Suspect]
     Active Substance: CARBIDOPA\LEVODOPA
     Indication: Parkinson^s disease
     Dosage: UNK
     Route: 065
  2. RYTARY [Suspect]
     Active Substance: CARBIDOPA\LEVODOPA
     Indication: Parkinson^s disease
     Dosage: 23.75 MG/95 MG AND 36.25 MG/145 MG; 6 CAPSULES, DAILY (1 CAPSULE EACH, TID)
     Route: 048
     Dates: start: 2017
  3. LATANOPROST [Concomitant]
     Active Substance: LATANOPROST
     Indication: Product used for unknown indication
     Dosage: UNK UNK, 1X/DAY
     Route: 065
     Dates: start: 202106

REACTIONS (4)
  - Atrial fibrillation [Unknown]
  - Glaucoma [Unknown]
  - Tremor [Unknown]
  - Orthostatic hypotension [Unknown]
